FAERS Safety Report 23797683 (Version 5)
Quarter: 2024Q4

REPORT INFORMATION
  Report Type: Report from Study
  Country: IQ (occurrence: IQ)
  Receive Date: 20240430
  Receipt Date: 20241016
  Transmission Date: 20250115
  Serious: Yes (Other)
  Sender: REGENERON
  Company Number: IQ-BAYER-2024A062150

PATIENT
  Age: 67 Year
  Sex: Female

DRUGS (3)
  1. EYLEA [Suspect]
     Active Substance: AFLIBERCEPT
     Indication: Retinal vein occlusion
     Dosage: TAKE 7 DOSE IN ONE EYE, SOL FOR INJ, 40 MG/ML
     Dates: start: 202308
  2. EYLEA [Suspect]
     Active Substance: AFLIBERCEPT
     Indication: Diabetic retinal oedema
     Dosage: TAKE 8 DOSE IN ONLY ONE EYE, SOLUTION FOR INJECTION, STRENGTH- 40MG/ML
     Dates: start: 20240420
  3. EYLEA [Suspect]
     Active Substance: AFLIBERCEPT
     Dosage: 9TH INJECTION, EVERY 6 MONTH, SOLUTION FOR INJECTION, STRENGTH- 40MG/ML

REACTIONS (5)
  - Dry eye [Recovering/Resolving]
  - Dry eye [Recovering/Resolving]
  - Cataract operation [Unknown]
  - Therapeutic response unexpected [Unknown]
  - Off label use [Unknown]

NARRATIVE: CASE EVENT DATE: 20240420
